FAERS Safety Report 9681898 (Version 1)
Quarter: 2013Q4

REPORT INFORMATION
  Report Type: Spontaneous
  Country: US (occurrence: US)
  Receive Date: 20131111
  Receipt Date: 20131111
  Transmission Date: 20140711
  Serious: Yes (Hospitalization, Other)
  Sender: FDA-Public Use
  Company Number: US-TEVA-443299USA

PATIENT
  Age: 35 Month
  Sex: Female

DRUGS (1)
  1. FLECAINIDE [Suspect]
     Indication: OVERDOSE
     Route: 065

REACTIONS (5)
  - Cardiotoxicity [Recovered/Resolved]
  - Electrocardiogram QRS complex prolonged [Recovered/Resolved]
  - Toxicity to various agents [Recovered/Resolved]
  - Overdose [Recovered/Resolved]
  - Hypoperfusion [Recovered/Resolved]
